FAERS Safety Report 9157636 (Version 1)
Quarter: 2013Q1

REPORT INFORMATION
  Report Type: Spontaneous
  Country: US (occurrence: US)
  Receive Date: 20130312
  Receipt Date: 20130312
  Transmission Date: 20140127
  Serious: Yes (Hospitalization)
  Sender: FDA-Public Use
  Company Number: US-JNJFOC-20130302071

PATIENT
  Age: 61 Year
  Sex: Female

DRUGS (2)
  1. XARELTO [Suspect]
     Indication: THROMBOSIS PROPHYLAXIS
     Dosage: FOR 4 DAYS AND WAS DISCONTINUED ON THE FIFTH DAY
     Route: 048
  2. XARELTO [Suspect]
     Indication: KNEE ARTHROPLASTY
     Dosage: FOR 4 DAYS AND WAS DISCONTINUED ON THE FIFTH DAY
     Route: 048

REACTIONS (1)
  - Deep vein thrombosis [Unknown]
